FAERS Safety Report 24690033 (Version 1)
Quarter: 2024Q4

REPORT INFORMATION
  Report Type: Spontaneous
  Country: US (occurrence: US)
  Receive Date: 20241203
  Receipt Date: 20241203
  Transmission Date: 20250115
  Serious: Yes (Other)
  Sender: AUROBINDO
  Company Number: US-AUROBINDO-AUR-APL-2024-058332

PATIENT
  Age: 76 Year
  Sex: Male

DRUGS (7)
  1. KETAMINE HYDROCHLORIDE [Suspect]
     Active Substance: KETAMINE HYDROCHLORIDE
     Indication: Procedural pain
     Dosage: 0.1 MG/KG/HR
     Route: 042
  2. OXYCODONE [Suspect]
     Active Substance: OXYCODONE
     Indication: Procedural pain
     Dosage: 15MG EVERY 4 HOURS
     Route: 065
  3. HYDROMORPHONE [Suspect]
     Active Substance: HYDROMORPHONE
     Indication: Procedural pain
     Dosage: UNK
     Route: 042
  4. REMIFENTANIL [Concomitant]
     Active Substance: REMIFENTANIL
     Indication: Anaesthesia
     Dosage: UNK
     Route: 065
  5. SUFENTANIL [Concomitant]
     Active Substance: SUFENTANIL
     Indication: Anaesthesia
     Dosage: 0.25 UG/KG/HR
     Route: 042
  6. FENTANYL [Concomitant]
     Active Substance: FENTANYL
     Indication: Anaesthesia
     Dosage: 100 MICROGRAM (100UG)
     Route: 042
  7. PROPOFOL [Concomitant]
     Active Substance: PROPOFOL
     Indication: Anaesthesia
     Dosage: UNK
     Route: 065

REACTIONS (3)
  - Delirium [Recovering/Resolving]
  - Hyperaesthesia [Recovering/Resolving]
  - Psychotic disorder [Recovering/Resolving]
